FAERS Safety Report 9110732 (Version 1)
Quarter: 2013Q1

REPORT INFORMATION
  Report Type: Spontaneous
  Country: US (occurrence: US)
  Receive Date: 20130219
  Receipt Date: 20130219
  Transmission Date: 20140127
  Serious: No
  Sender: FDA-Public Use
  Company Number: US-BRISTOL-MYERS SQUIBB COMPANY-16754418

PATIENT
  Age: 69 Year
  Sex: Female

DRUGS (1)
  1. ORENCIA [Suspect]
     Dosage: VIALS:3,LAST INF ON 5JUL12
     Route: 042
     Dates: start: 20110512

REACTIONS (2)
  - Hypersensitivity [Unknown]
  - Animal bite [Unknown]
